FAERS Safety Report 21161978 (Version 1)
Quarter: 2022Q3

REPORT INFORMATION
  Report Type: Spontaneous
  Country: ES (occurrence: ES)
  Receive Date: 20220802
  Receipt Date: 20220802
  Transmission Date: 20221026
  Serious: Yes (Other)
  Sender: FDA-Public Use
  Company Number: None

PATIENT
  Age: 69 Year
  Sex: Female

DRUGS (6)
  1. FUROSEMIDE [Suspect]
     Active Substance: FUROSEMIDE
     Indication: Atrial fibrillation
     Dosage: 40.0 MG EVERY 24 H
     Dates: start: 20210320, end: 20210323
  2. BISOPROLOL [Concomitant]
     Active Substance: BISOPROLOL
     Indication: Acute myocardial infarction
     Dosage: STRENGTH: 5 MG, 60 TABLETS
     Dates: start: 20190109
  3. ALLOPURINOL [Concomitant]
     Active Substance: ALLOPURINOL
     Indication: Gout
     Dosage: STRENGTH: 100 MG TABLETS EFG, 100 TABLETS, 100.0 MG AT BREAKFAST
     Dates: start: 20180130
  4. MOMETASONE FUROATE [Concomitant]
     Active Substance: MOMETASONE FUROATE
     Indication: Rhinitis
     Dosage: STRENGTH: 50 MICROGRAMS/ SPRAY SUSPENSION FOR?NASAL SPRAY, 140 SPRAYS, 100.0 MCG EVERY 24 H
     Dates: start: 20201014
  5. OMEPRAZOLE [Concomitant]
     Active Substance: OMEPRAZOLE
     Indication: Persistent depressive disorder
     Dosage: STRENGTH: 20 MG, 56 CAPSULES, 20.0MG AT BREAKFAST
     Dates: start: 20190822
  6. TRAZODONE [Concomitant]
     Active Substance: TRAZODONE HYDROCHLORIDE
     Indication: Persistent depressive disorder
     Dosage: STRENGTH: 100 MG TABLETS EFG, 60 TABLETS (ALUMINUM BLISTER /PVDCPE),150.0 MG EVERY 24 H NOC
     Dates: start: 20130320

REACTIONS (1)
  - Acute kidney injury [Recovered/Resolved]

NARRATIVE: CASE EVENT DATE: 20210320
